FAERS Safety Report 15074261 (Version 1)
Quarter: 2018Q2

REPORT INFORMATION
  Report Type: Spontaneous
  Country: PL (occurrence: PL)
  Receive Date: 20180627
  Receipt Date: 20180627
  Transmission Date: 20180711
  Serious: Yes (Life-Threatening)
  Sender: FDA-Public Use
  Company Number: PL-FRESENIUS KABI-FK201807020

PATIENT
  Age: 66 Year
  Sex: Female
  Weight: 57 kg

DRUGS (3)
  1. XELODA [Concomitant]
     Active Substance: CAPECITABINE
     Indication: GASTRIC CANCER
     Route: 048
     Dates: start: 20140513, end: 20140513
  2. OXALIPLATIN (MANUFACTURER UNKNOWN) [Suspect]
     Active Substance: OXALIPLATIN
     Indication: GASTRIC CANCER
     Dosage: 206.34
     Route: 042
     Dates: start: 20140513, end: 20140513
  3. EPIRUBICIN [Concomitant]
     Active Substance: EPIRUBICIN
     Indication: GASTRIC CANCER
     Dosage: 79
     Route: 042
     Dates: start: 20140513, end: 20140513

REACTIONS (2)
  - Dyspnoea [Recovering/Resolving]
  - Stridor [Recovering/Resolving]

NARRATIVE: CASE EVENT DATE: 20140513
